FAERS Safety Report 22332514 (Version 2)
Quarter: 2023Q2

REPORT INFORMATION
  Report Type: Report from Study
  Country: JP (occurrence: JP)
  Receive Date: 20230517
  Receipt Date: 20230616
  Transmission Date: 20230721
  Serious: Yes (Hospitalization)
  Sender: FDA-Public Use
  Company Number: JP-ORPHANEU-2017000245

PATIENT

DRUGS (11)
  1. CYSTADANE [Suspect]
     Active Substance: BETAINE
     Indication: Homocystinuria
     Dosage: 6 GRAM/DAY, BID
     Route: 048
     Dates: start: 20150819, end: 20160706
  2. CYSTADANE [Suspect]
     Active Substance: BETAINE
     Dosage: 4 GRAM/DAY, BID
     Route: 048
     Dates: start: 20160818, end: 20170618
  3. FURSULTIAMINE [Concomitant]
     Active Substance: FURSULTIAMINE
     Indication: Methylenetetrahydrofolate reductase deficiency
     Dosage: 50 MG/DAILY
     Route: 048
     Dates: start: 20170321, end: 20170621
  4. METHYLCOBALAMIN [Concomitant]
     Active Substance: METHYLCOBALAMIN
     Indication: Methylenetetrahydrofolate reductase deficiency
     Dosage: 500 MILLIGRAM, QD, STARTED PRIOR TO THE START OF CYSTADANE
     Route: 048
     Dates: end: 20170621
  5. MAGNESIUM OXIDE [Concomitant]
     Active Substance: MAGNESIUM OXIDE
     Indication: Prophylaxis
     Dosage: 500 MG/DAY, BID
     Route: 048
     Dates: start: 20170529, end: 20170621
  6. VITANEURIN [FURSULTIAMINE;HYDROXOCOBALAMIN;PYRIDOXAL PHOS] [Concomitant]
     Indication: Product used for unknown indication
     Dosage: 50 MILLIGRAM, QD
     Route: 048
     Dates: start: 20170321, end: 20170621
  7. FOLIC ACID [Concomitant]
     Active Substance: FOLIC ACID
     Indication: Product used for unknown indication
     Dosage: 5 MILLIGRAM, QD, STARTED PRIOR TO THE START OF CYSTADANE
     Route: 048
  8. VESICARE [Concomitant]
     Active Substance: SOLIFENACIN SUCCINATE
     Indication: Product used for unknown indication
     Dosage: 5 MILLIGRAM, QD, STARTED PRIOR TO THE START OF CYSTADANE
     Route: 048
  9. VITAMEDIN [CYANOCOBALAMIN;PYRIDOXINE HYDROCHLORIDE;THIAMINE HYDROCHLO] [Concomitant]
     Indication: Product used for unknown indication
     Dosage: 25 MILLIGRAM, QD, STARTED PRIOR TO THE START OF CYSTADANE
     Route: 048
     Dates: end: 20170320
  10. SEROQUEL [Concomitant]
     Active Substance: QUETIAPINE FUMARATE
     Indication: Product used for unknown indication
     Dosage: 25 MILLIGRAM, QD
     Route: 048
     Dates: start: 20160908, end: 20170320
  11. ENSURE [Concomitant]
     Active Substance: AMINO ACIDS\DEXTROSE\ELECTROLYTES NOS\SOYBEAN OIL\VITAMINS
     Indication: Nutritional supplementation
     Dosage: 1 CAN/DAILY, QD
     Route: 048
     Dates: start: 20170111

REACTIONS (3)
  - Infected skin ulcer [Recovered/Resolved]
  - Osteomyelitis [Recovered/Resolved]
  - Disease progression [Unknown]

NARRATIVE: CASE EVENT DATE: 20170101
